FAERS Safety Report 12182977 (Version 2)
Quarter: 2016Q4

REPORT INFORMATION
  Report Type: Spontaneous
  Country: US (occurrence: US)
  Receive Date: 20160316
  Receipt Date: 20161229
  Transmission Date: 20170207
  Serious: No
  Sender: FDA-Public Use
  Company Number: US-BIOGEN-2016BI00202674

PATIENT
  Sex: Male

DRUGS (1)
  1. TECFIDERA [Suspect]
     Active Substance: DIMETHYL FUMARATE
     Indication: MULTIPLE SCLEROSIS
     Route: 048
     Dates: start: 20140617

REACTIONS (9)
  - Hypertension [Not Recovered/Not Resolved]
  - Agitation [Not Recovered/Not Resolved]
  - Malaise [Not Recovered/Not Resolved]
  - Emotional distress [Not Recovered/Not Resolved]
  - Mental impairment [Not Recovered/Not Resolved]
  - Memory impairment [Not Recovered/Not Resolved]
  - Discomfort [Not Recovered/Not Resolved]
  - Stress [Not Recovered/Not Resolved]
  - Wrong technique in product usage process [Recovered/Resolved]
